FAERS Safety Report 8807489 (Version 1)
Quarter: 2012Q4

REPORT INFORMATION
  Report Type: 
  Country: GB (occurrence: GB)
  Receive Date: 20120925
  Receipt Date: 20120925
  Transmission Date: 20130627
  Serious: Yes (Other)
  Sender: FDA-Public Use
  Company Number: GB-TEVA-358937ISR

PATIENT
  Age: 23 Year
  Sex: Female
  Weight: 62 kg

DRUGS (4)
  1. ERYTHROMYCIN [Suspect]
     Route: 048
     Dates: start: 20120903
  2. ERYTHROMYCIN [Suspect]
     Dates: start: 20120824, end: 20120831
  3. MICROGYNON [Concomitant]
     Indication: ORAL CONTRACEPTION
     Route: 048
     Dates: start: 20120120
  4. PREDNISOLONE [Concomitant]
     Dates: start: 20120903

REACTIONS (1)
  - Angioedema [Recovered/Resolved]
